FAERS Safety Report 25872508 (Version 2)
Quarter: 2025Q4

REPORT INFORMATION
  Report Type: Spontaneous
  Country: CA (occurrence: CA)
  Receive Date: 20251002
  Receipt Date: 20251120
  Transmission Date: 20260117
  Serious: Yes (Death, Other)
  Sender: ASTELLAS
  Company Number: CA-PFIZER INC-PV202500116527

PATIENT
  Age: 49 Year
  Sex: Female

DRUGS (1)
  1. PADCEV [Suspect]
     Active Substance: ENFORTUMAB VEDOTIN-EJFV
     Indication: Product used for unknown indication
     Dosage: UNK?POWDER FOR SOLUTION FOR INFUSION
     Route: 065
     Dates: start: 20241223, end: 20250926

REACTIONS (1)
  - Death [Fatal]

NARRATIVE: CASE EVENT DATE: 20250901
